FAERS Safety Report 9692271 (Version 2)
Quarter: 2013Q4

REPORT INFORMATION
  Report Type: Spontaneous
  Country: US (occurrence: US)
  Receive Date: 20131118
  Receipt Date: 20131121
  Transmission Date: 20140711
  Serious: Yes (Disabling, Other)
  Sender: FDA-Public Use
  Company Number: US-DRREDDYS-USA/USA/13/0035523

PATIENT
  Age: 78 Year
  Sex: Male

DRUGS (4)
  1. OMEPRAZOLE MAGNESIUM DELAYED RELEASE OTC [Suspect]
     Indication: GASTROOESOPHAGEAL REFLUX DISEASE
     Route: 048
     Dates: start: 201306, end: 2013
  2. OMEPRAZOLE MAGNESIUM DELAYED RELEASE OTC [Suspect]
     Route: 048
     Dates: start: 2013
  3. NAPROXEN [Concomitant]
     Indication: PAIN
     Route: 065
  4. VITAMINS [Concomitant]
     Indication: PRODUCT USED FOR UNKNOWN INDICATION
     Route: 065

REACTIONS (2)
  - Arthritis [Recovering/Resolving]
  - Gait disturbance [Recovering/Resolving]
